FAERS Safety Report 24062739 (Version 2)
Quarter: 2024Q3

REPORT INFORMATION
  Report Type: Spontaneous
  Country: US (occurrence: US)
  Receive Date: 20240708
  Receipt Date: 20240805
  Transmission Date: 20241016
  Serious: Yes (Other)
  Sender: JOHNSON AND JOHNSON
  Company Number: US-JNJFOC-20240703411

PATIENT
  Age: 59 Year
  Sex: Female

DRUGS (3)
  1. SPRAVATO [Suspect]
     Active Substance: ESKETAMINE
     Indication: Depression
     Dates: start: 202404
  2. SPRAVATO [Suspect]
     Active Substance: ESKETAMINE
     Dosage: TWICE A WEEK FOR 1 MONTH
     Dates: start: 202405
  3. SPRAVATO [Suspect]
     Active Substance: ESKETAMINE
     Dosage: ONCE A WEEK FOR 1 MONTH
     Dates: end: 202407

REACTIONS (9)
  - Hallucination, visual [Unknown]
  - Diarrhoea [Unknown]
  - Decreased appetite [Not Recovered/Not Resolved]
  - Dehydration [Unknown]
  - Abdominal pain upper [Unknown]
  - Drug intolerance [Unknown]
  - Fatigue [Unknown]
  - Adverse drug reaction [Unknown]
  - Constipation [Unknown]

NARRATIVE: CASE EVENT DATE: 20240101
